FAERS Safety Report 14234865 (Version 1)
Quarter: 2017Q4

REPORT INFORMATION
  Report Type: Spontaneous
  Country: US (occurrence: US)
  Receive Date: 20171129
  Receipt Date: 20171129
  Transmission Date: 20180321
  Serious: Yes (Hospitalization, Other)
  Sender: FDA-Public Use
  Company Number: US-SAOL THERAPEUTICS-2017SAO01636

PATIENT
  Sex: Male

DRUGS (11)
  1. BACLOFEN. [Suspect]
     Active Substance: BACLOFEN
     Indication: MULTIPLE SCLEROSIS
  2. BACLOFEN. [Suspect]
     Active Substance: BACLOFEN
     Indication: MUSCLE SPASTICITY
  3. HYDRODIURIL [Concomitant]
     Active Substance: HYDROCHLOROTHIAZIDE
     Dosage: 25 MG, 1X/DAY
     Route: 048
  4. BACLOFEN. [Suspect]
     Active Substance: BACLOFEN
     Indication: MUSCLE SPASTICITY
     Dosage: 499.5 ?G, \DAY
     Route: 037
  5. TEGRETOL [Concomitant]
     Active Substance: CARBAMAZEPINE
     Dosage: 200 MG, 3X/DAY
     Route: 048
  6. NEURONTIN [Concomitant]
     Active Substance: GABAPENTIN
     Dosage: 300 MG, 3X/DAY
     Route: 048
  7. GABLOFEN [Suspect]
     Active Substance: BACLOFEN
     Dosage: 499.5 ?G, \DAY
     Route: 037
  8. COZAAR [Concomitant]
     Active Substance: LOSARTAN POTASSIUM
     Dosage: 50 MG, 1X/DAY
     Route: 048
  9. BACLOFEN. [Suspect]
     Active Substance: BACLOFEN
     Indication: MULTIPLE SCLEROSIS
  10. TYLENOL [Concomitant]
     Active Substance: ACETAMINOPHEN
     Dosage: 650 MG, 4X/DAY
     Route: 048
  11. NUTREN 1.5 [Concomitant]
     Active Substance: DIETARY SUPPLEMENT
     Dosage: 80 ML, UNK
     Route: 048

REACTIONS (11)
  - Trigeminal neuralgia [Unknown]
  - Pain [Unknown]
  - Tachycardia [Unknown]
  - Pneumonia aspiration [Unknown]
  - Malnutrition [Unknown]
  - Multiple sclerosis [Not Recovered/Not Resolved]
  - Pseudomonas infection [Unknown]
  - Acute respiratory failure [Unknown]
  - Sepsis [Unknown]
  - Hypertension [Unknown]
  - Acinetobacter infection [Unknown]

NARRATIVE: CASE EVENT DATE: 2009
